FAERS Safety Report 9670172 (Version 1)
Quarter: 2013Q4

REPORT INFORMATION
  Report Type: Spontaneous
  Country: US (occurrence: None)
  Receive Date: 20131025
  Receipt Date: 20131025
  Transmission Date: 20140711
  Serious: Yes (Hospitalization)
  Sender: FDA-Public Use
  Company Number: 2013038500

PATIENT
  Age: 52 Year
  Sex: Male
  Weight: 83.01 kg

DRUGS (11)
  1. PRIVIGEN (IMMUNE GLOBULIN INTRAVENOUS (HUMAN) 10% LIQUID) [Suspect]
     Indication: IMMUNODEFICIENCY COMMON VARIABLE
     Dosage: (40 G 1X/4 WEEKS INTRAVENOUS (NOT OTHERWISE SPECIFIED) )
     Route: 042
     Dates: start: 20131007, end: 20131007
  2. AMBIEN (ZOLPIDEM TARTRATE) [Concomitant]
  3. AMLODIPINE (AMLODIPINE) [Concomitant]
  4. ROPINIROLE (ROPINIROLE) [Concomitant]
  5. LOSARTAN HCTZ (HYDROCHLOROTHIAZIDE W/LORSATAN) [Concomitant]
  6. GABAPENTIN (GABAPENTIN) [Concomitant]
  7. DIPHENHYDRAMINE (DIPHENHYDRAMINE) [Concomitant]
  8. HEPARIN (HEPARIN) [Concomitant]
  9. LIDOCAINE/PRILOCAINE (EMLA /00675501/) [Concomitant]
  10. EPI-PEN (EPINEPHRINE HYDROCHLORIDE) [Concomitant]
  11. SODIUM CHLORIDE [Concomitant]

REACTIONS (3)
  - Influenza like illness [None]
  - Deep vein thrombosis [None]
  - Feeling abnormal [None]
